FAERS Safety Report 9589389 (Version 1)
Quarter: 2013Q4

REPORT INFORMATION
  Report Type: Spontaneous
  Country: US (occurrence: US)
  Receive Date: 20131003
  Receipt Date: 20131003
  Transmission Date: 20140711
  Serious: No
  Sender: FDA-Public Use
  Company Number: US-AMGEN-USASP2012069723

PATIENT
  Sex: Male
  Weight: 79.82 kg

DRUGS (3)
  1. ENBREL [Suspect]
     Indication: PSORIASIS
     Dosage: 50 MG, QWK
     Route: 058
  2. TACLONEX [Concomitant]
     Dosage: UNK
  3. CLOBETASOL E [Concomitant]
     Dosage: 0.05 %, UNK

REACTIONS (1)
  - Influenza [Unknown]
